FAERS Safety Report 8190781-6 (Version None)
Quarter: 2012Q1

REPORT INFORMATION
  Report Type: 
  Country: None (occurrence: None)
  Receive Date: 20120305
  Receipt Date: 20120223
  Transmission Date: 20120608
  Serious: Yes (Death)
  Sender: FDA-Public Use
  Company Number: DSA_55242_2012

PATIENT
  Sex: Female

DRUGS (2)
  1. NEUROLEPTIC UNKNOWN [Suspect]
     Indication: DEPRESSION
     Dosage: (DF)
     Dates: end: 20110101
  2. WELLBUTRIN XL [Suspect]
     Indication: DEPRESSION
     Dosage: (DF ORAL)
     Route: 048
     Dates: start: 20110101, end: 20110101

REACTIONS (3)
  - MUSCLE CONTRACTIONS INVOLUNTARY [None]
  - BLOOD PHOSPHORUS DECREASED [None]
  - RESPIRATORY FAILURE [None]
